FAERS Safety Report 13267722 (Version 4)
Quarter: 2017Q3

REPORT INFORMATION
  Report Type: Spontaneous
  Country: US (occurrence: US)
  Receive Date: 20170224
  Receipt Date: 20170720
  Transmission Date: 20171127
  Serious: No
  Sender: FDA-Public Use
  Company Number: US-PFIZER INC-2016523395

PATIENT
  Age: 69 Year
  Sex: Male
  Weight: 91 kg

DRUGS (10)
  1. ELIQUIS [Concomitant]
     Active Substance: APIXABAN
     Dosage: 5 MG, 2X/DAY
  2. SUTENT [Suspect]
     Active Substance: SUNITINIB MALATE
     Indication: RENAL CANCER METASTATIC
     Dosage: 50 MG, 1X/DAY (TOOK TWO 28 DAY COURSES OF THE MEDICATION)
     Route: 048
     Dates: start: 201611
  3. FLOMAX [Concomitant]
     Active Substance: TAMSULOSIN HYDROCHLORIDE
     Dosage: 0.4 MG, 1X/DAY
  4. TOPROL XL [Concomitant]
     Active Substance: METOPROLOL SUCCINATE
     Dosage: UNK
  5. TOPROL XL [Concomitant]
     Active Substance: METOPROLOL SUCCINATE
     Dosage: 100 MG, 2X/DAY
  6. LIPITOR [Concomitant]
     Active Substance: ATORVASTATIN CALCIUM
     Dosage: 20 MG, 1X/DAY
  7. ASPIRIN. [Concomitant]
     Active Substance: ASPIRIN
     Dosage: 81 MG, 1X/DAY
  8. SUTENT [Suspect]
     Active Substance: SUNITINIB MALATE
     Indication: PAPILLARY RENAL CELL CARCINOMA
     Dosage: 50 MG, CYCLIC  (DAY 1-28) FOLLOWED BY14 DAYS OFF
     Dates: start: 20161113, end: 20170201
  9. NORVASC [Concomitant]
     Active Substance: AMLODIPINE BESYLATE
     Dosage: UNK
  10. MICARDIS [Concomitant]
     Active Substance: TELMISARTAN
     Dosage: UNK UNK, 1X/DAY (80/25)

REACTIONS (1)
  - Neoplasm progression [Unknown]

NARRATIVE: CASE EVENT DATE: 20161113
